FAERS Safety Report 21534347 (Version 2)
Quarter: 2022Q4

REPORT INFORMATION
  Report Type: Report from Study
  Country: CA (occurrence: CA)
  Receive Date: 20221101
  Receipt Date: 20221201
  Transmission Date: 20230112
  Serious: Yes (Other)
  Sender: FDA-Public Use
  Company Number: CA-GLAXOSMITHKLINE-CA2022AMR156198

PATIENT

DRUGS (6)
  1. MEPOLIZUMAB [Suspect]
     Active Substance: MEPOLIZUMAB
     Indication: Asthma
     Dosage: 100 MG,Z, EVERY 4 WEEKS
     Route: 058
     Dates: start: 20220316
  2. MEPOLIZUMAB [Suspect]
     Active Substance: MEPOLIZUMAB
     Indication: Asthma
     Dosage: 100MG/SC EVERY 4 WEEKS
     Route: 058
     Dates: start: 20220316
  3. SYMBICORT [Concomitant]
     Active Substance: BUDESONIDE\FORMOTEROL FUMARATE DIHYDRATE
     Indication: Product used for unknown indication
     Dosage: 2 PUFF(S), BID, 200 MCG
  4. ALBUTEROL [Concomitant]
     Active Substance: ALBUTEROL
     Indication: Product used for unknown indication
     Dosage: 100 UG, PRN
  5. PREDNISONE [Concomitant]
     Active Substance: PREDNISONE
     Indication: Product used for unknown indication
     Dosage: 5 MG, Z EVERY 4 DAYS
  6. PREDNISONE [Concomitant]
     Active Substance: PREDNISONE
     Dosage: 25 MG

REACTIONS (7)
  - Pneumonia [Recovering/Resolving]
  - Hepatitis [Unknown]
  - Fall [Unknown]
  - Contusion [Unknown]
  - Abdominal pain [Unknown]
  - Candida infection [Unknown]
  - Gamma-glutamyltransferase increased [Unknown]

NARRATIVE: CASE EVENT DATE: 20221009
